FAERS Safety Report 18376030 (Version 1)
Quarter: 2020Q4

REPORT INFORMATION
  Report Type: Spontaneous
  Country: US (occurrence: US)
  Receive Date: 20201009
  Receipt Date: 20201009
  Transmission Date: 20210114
  Serious: No
  Sender: FDA-Public Use
  Company Number: None

PATIENT
  Age: 64 Year
  Sex: Female

DRUGS (2)
  1. TALTZ [Suspect]
     Active Substance: IXEKIZUMAB
     Indication: PSORIASIS
     Route: 058
     Dates: start: 20190521
  2. LYRICA [Concomitant]
     Active Substance: PREGABALIN

REACTIONS (1)
  - Pulmonary mass [None]

NARRATIVE: CASE EVENT DATE: 20201007
